FAERS Safety Report 9824064 (Version 2)
Quarter: 2014Q1

REPORT INFORMATION
  Report Type: Spontaneous
  Country: US (occurrence: US)
  Receive Date: 20140116
  Receipt Date: 20140116
  Transmission Date: 20141002
  Serious: Yes (Hospitalization)
  Sender: FDA-Public Use
  Company Number: US-GILEAD-2011-0040246

PATIENT
  Age: 53 Year
  Sex: Female
  Weight: 78.9 kg

DRUGS (17)
  1. LETAIRIS [Suspect]
     Indication: PULMONARY HYPERTENSION
     Route: 048
     Dates: start: 20080312, end: 201107
  2. LETAIRIS [Suspect]
     Indication: PULMONARY EMBOLISM
  3. ENALAPRIL [Concomitant]
  4. WARFARIN [Concomitant]
  5. FUROSEMIDE [Concomitant]
  6. METOLAZONE [Concomitant]
  7. ACTONEL [Concomitant]
  8. TRAMADOL [Concomitant]
  9. LEVOTHYROXINE [Concomitant]
  10. AZITHROMYCIN [Concomitant]
  11. HYDROXYUREA [Concomitant]
  12. AMITRIPTYLINE [Concomitant]
  13. FOLIC ACID [Concomitant]
  14. MAGNESIUM OXIDE [Concomitant]
  15. VITAMIN C [Concomitant]
  16. CHOLECALCIFEROL [Concomitant]
  17. MULTIVITAMIN [Concomitant]

REACTIONS (1)
  - Oedema peripheral [Not Recovered/Not Resolved]
